FAERS Safety Report 17578499 (Version 2)
Quarter: 2020Q2

REPORT INFORMATION
  Report Type: Spontaneous
  Country: US (occurrence: US)
  Receive Date: 20200324
  Receipt Date: 20200402
  Transmission Date: 20200713
  Serious: Yes (Hospitalization)
  Sender: FDA-Public Use
  Company Number: US-PFIZER INC-2020082856

PATIENT
  Age: 90 Year
  Sex: Male
  Weight: 74.84 kg

DRUGS (3)
  1. ROBITUSSIN HONEY COUGH (DEXTROMETHORPHAN HYDROBROMIDE) [Suspect]
     Active Substance: DEXTROMETHORPHAN HYDROBROMIDE
     Indication: LOWER RESPIRATORY TRACT INFECTION
  2. ROBITUSSIN HONEY COUGH (DEXTROMETHORPHAN HYDROBROMIDE) [Suspect]
     Active Substance: DEXTROMETHORPHAN HYDROBROMIDE
     Indication: NASOPHARYNGITIS
     Dosage: 20 ML, EVERY 4 HRS (ONLY TOOK TWO DOSES)
     Dates: start: 20200218, end: 20200220
  3. ROBITUSSIN HONEY COUGH (DEXTROMETHORPHAN HYDROBROMIDE) [Suspect]
     Active Substance: DEXTROMETHORPHAN HYDROBROMIDE
     Indication: NASAL CONGESTION

REACTIONS (2)
  - Headache [Recovered/Resolved]
  - Dizziness [Recovered/Resolved]

NARRATIVE: CASE EVENT DATE: 20200218
